FAERS Safety Report 7965741-8 (Version None)
Quarter: 2011Q4

REPORT INFORMATION
  Report Type: 
  Country: None (occurrence: None)
  Receive Date: 20111208
  Receipt Date: 20111205
  Transmission Date: 20120403
  Serious: Yes (Death, Hospitalization, Other)
  Sender: FDA-Public Use
  Company Number: US-CELGENEUS-163-21880-11053489

PATIENT
  Sex: Male

DRUGS (14)
  1. REVLIMID [Suspect]
     Dosage: 10 MILLIGRAM
     Route: 048
     Dates: start: 20110427, end: 20110501
  2. ACTOS [Concomitant]
     Dosage: 30 MILLIGRAM
     Route: 065
  3. MYCAMINE [Concomitant]
     Dosage: 50 MILLIGRAM
     Route: 050
  4. LOVAZA [Concomitant]
     Dosage: 1000 MILLIGRAM
     Route: 065
  5. LEVITRA [Concomitant]
     Dosage: 10 MILLIGRAM
     Route: 065
  6. ASCORBIC ACID [Concomitant]
     Route: 065
  7. CALCIUM +D [Concomitant]
     Route: 065
  8. DIGOXIN [Concomitant]
     Dosage: .125 MILLIGRAM
     Route: 065
  9. NIASPAN [Concomitant]
     Dosage: 500 MILLIGRAM
     Route: 065
  10. GLIMEPIRIDE [Concomitant]
     Dosage: 2 MILLIGRAM
     Route: 065
  11. SENIOR MULTI PLUS [Concomitant]
     Route: 065
  12. REVLIMID [Suspect]
     Dosage: 10 MILLIGRAM
     Route: 048
     Dates: start: 20101230, end: 20110411
  13. BYSTOLIC [Concomitant]
     Dosage: 10 MILLIGRAM
     Route: 065
  14. LANOXIN [Concomitant]
     Dosage: .25 MILLIGRAM
     Route: 065

REACTIONS (5)
  - PYREXIA [None]
  - PNEUMONIA BACTERIAL [None]
  - SEPSIS SYNDROME [None]
  - NEUTROPENIA [None]
  - CARDIAC FAILURE CONGESTIVE [None]
